FAERS Safety Report 4514657-8 (Version None)
Quarter: 2004Q4

REPORT INFORMATION
  Report Type: 
  Country: None (occurrence: None)
  Receive Date: 20041126
  Receipt Date: 20041116
  Transmission Date: 20050328
  Serious: Yes (Other)
  Sender: FDA-Public Use
  Company Number: CIP04001971

PATIENT
  Age: 70 Year
  Sex: Female

DRUGS (7)
  1. ACTONEL [Suspect]
     Dosage: 2.5 MG DAILY, ORAL
     Route: 048
  2. ALINAMIN F (FURSULTIAMINE) [Concomitant]
  3. PREDNISOLONE [Concomitant]
  4. AZULFIDINE [Concomitant]
  5. THIOLA (TIOPRONIN) [Concomitant]
  6. RIDAURA [Concomitant]
  7. ASPIRIN [Concomitant]

REACTIONS (5)
  - ANAEMIA [None]
  - CONDITION AGGRAVATED [None]
  - HAEMORRHAGE [None]
  - IRON DEFICIENCY ANAEMIA [None]
  - RHEUMATOID ARTHRITIS [None]
